FAERS Safety Report 5024193-0 (Version None)
Quarter: 2006Q2

REPORT INFORMATION
  Report Type: 
  Country: None (occurrence: None)
  Receive Date: 20060607
  Receipt Date: 20060529
  Transmission Date: 20061013
  Serious: Yes (Other)
  Sender: FDA-Public Use
  Company Number: 2006-05-1566

PATIENT
  Age: 61 Year
  Sex: Female

DRUGS (13)
  1. RINDERON  INJECTABLE SUSPENSION [Suspect]
     Indication: STATUS ASTHMATICUS
     Dosage: 6 MG-4MG* INTRAVENOUS
     Route: 042
     Dates: start: 20050131, end: 20050202
  2. RINDERON  INJECTABLE SUSPENSION [Suspect]
     Indication: STATUS ASTHMATICUS
     Dosage: 6 MG-4MG* INTRAVENOUS
     Route: 042
     Dates: start: 20050203, end: 20050204
  3. REBAMIPIDE [Concomitant]
  4. TULOBUTEROL [Concomitant]
  5. ASTHMOLYSIN D [Concomitant]
  6. ONON (PRANLUKAST) [Concomitant]
  7. BRICANYL [Concomitant]
  8. LENDORMIN [Concomitant]
  9. HUSTAZOL [Concomitant]
  10. ATARAX [Concomitant]
  11. AMINOPHYLLIN [Concomitant]
  12. TICLOPIDINE HYDROCHLORIDE [Concomitant]
  13. FAMOTIDINE [Concomitant]

REACTIONS (12)
  - AGITATION [None]
  - ASTHENIA [None]
  - BODY TEMPERATURE INCREASED [None]
  - CHEST DISCOMFORT [None]
  - DYSPNOEA [None]
  - HEADACHE [None]
  - NASOPHARYNGITIS [None]
  - NAUSEA [None]
  - PRURITUS [None]
  - RASH [None]
  - THERAPY NON-RESPONDER [None]
  - WHEEZING [None]
